FAERS Safety Report 5777440-1 (Version None)
Quarter: 2008Q2

REPORT INFORMATION
  Report Type: 
  Country: None (occurrence: None)
  Receive Date: 20080616
  Receipt Date: 20080603
  Transmission Date: 20081010
  Serious: Yes (Other)
  Sender: FDA-Public Use
  Company Number: 2008AP001346

PATIENT
  Age: 79 Year
  Sex: Male

DRUGS (10)
  1. SOTALOL HCL [Suspect]
     Indication: CARDIAC DISORDER
     Dosage: 80 MG;BID;PO
     Route: 048
     Dates: start: 20080528, end: 20080530
  2. ISOSORBIDE MONONITRATE [Concomitant]
  3. OLMESARTAN MEDOXOMIL [Concomitant]
  4. AMLODIPINE BESYLATE [Concomitant]
  5. SIMVASTATIN [Concomitant]
  6. EZETIMIBE [Concomitant]
  7. WARFARIN SODIUM [Concomitant]
  8. SOTALOL HCL [Concomitant]
  9. ASPIRIN [Concomitant]
  10. CLOPIDOGREL BISULFATE [Concomitant]

REACTIONS (2)
  - ATRIAL FIBRILLATION [None]
  - HEART RATE INCREASED [None]
